FAERS Safety Report 5463848-0 (Version None)
Quarter: 2007Q3

REPORT INFORMATION
  Report Type: 
  Country: None (occurrence: None)
  Receive Date: 20070921
  Receipt Date: 20070917
  Transmission Date: 20080115
  Serious: Yes (Disabling)
  Sender: FDA-Public Use
  Company Number: US-MERCK-0709USA02461

PATIENT
  Age: 60 Year
  Sex: Male

DRUGS (4)
  1. JANUVIA [Suspect]
     Indication: DIABETES MELLITUS
     Route: 048
     Dates: start: 20070529, end: 20070531
  2. LIPITOR [Concomitant]
     Route: 065
  3. ACTOS [Concomitant]
     Route: 065
  4. COUMADIN [Concomitant]
     Route: 065

REACTIONS (3)
  - NASAL CONGESTION [None]
  - NAUSEA [None]
  - VOMITING [None]
